FAERS Safety Report 4702808-1 (Version None)
Quarter: 2005Q2

REPORT INFORMATION
  Report Type: 
  Country: None (occurrence: None)
  Receive Date: 20050629
  Receipt Date: 20050617
  Transmission Date: 20051028
  Serious: Yes (Hospitalization)
  Sender: FDA-Public Use
  Company Number: FR-SANOFI-SYNTHELABO-A01200504233

PATIENT
  Age: 83 Year
  Sex: Male
  Weight: 58 kg

DRUGS (9)
  1. PLAVIX [Suspect]
     Indication: DRUG USE FOR UNKNOWN INDICATION
     Route: 048
     Dates: end: 20050408
  2. CORDARONE [Suspect]
     Dosage: UNK
     Route: 065
  3. KARDEGIC [Suspect]
     Dosage: UNK
     Route: 065
  4. DAFALGAN [Suspect]
     Indication: DRUG USE FOR UNKNOWN INDICATION
     Route: 048
     Dates: end: 20050408
  5. DEBRIDAT [Suspect]
     Indication: DRUG USE FOR UNKNOWN INDICATION
     Route: 065
     Dates: end: 20050408
  6. ZOLOFT [Suspect]
     Indication: DRUG USE FOR UNKNOWN INDICATION
     Route: 065
     Dates: start: 20050401, end: 20050408
  7. VOLTAREN [Suspect]
     Indication: DRUG USE FOR UNKNOWN INDICATION
     Route: 065
     Dates: end: 20050408
  8. HEMIGOXINE NATIVELLE [Suspect]
     Indication: DRUG USE FOR UNKNOWN INDICATION
     Route: 065
     Dates: end: 20050408
  9. TEMESTA [Concomitant]
     Indication: DRUG USE FOR UNKNOWN INDICATION
     Dosage: UNK
     Route: 065

REACTIONS (8)
  - CONFUSIONAL STATE [None]
  - HAEMATOCRIT DECREASED [None]
  - HYPONATRAEMIA [None]
  - INFLAMMATION [None]
  - LUNG DISORDER [None]
  - NERVOUS SYSTEM DISORDER [None]
  - PYREXIA [None]
  - QUADRIPLEGIA [None]
